FAERS Safety Report 5572963-2 (Version None)
Quarter: 2007Q4

REPORT INFORMATION
  Report Type: 
  Country: None (occurrence: None)
  Receive Date: 20071224
  Receipt Date: 20071217
  Transmission Date: 20080405
  Serious: Yes (Other)
  Sender: FDA-Public Use
  Company Number: JP-BRISTOL-MYERS SQUIBB COMPANY-14021521

PATIENT
  Age: 43 Year
  Sex: Male

DRUGS (4)
  1. IFOSFAMIDE [Suspect]
     Indication: TESTICULAR NEOPLASM
     Route: 042
     Dates: start: 20071122, end: 20071122
  2. UROMITEXAN [Suspect]
     Route: 042
     Dates: start: 20071122, end: 20071122
  3. TAXOL [Suspect]
     Dates: start: 20071122, end: 20071122
  4. RANDA [Suspect]
     Dates: start: 20071122, end: 20071122

REACTIONS (3)
  - BONE MARROW FAILURE [None]
  - CONFUSIONAL STATE [None]
  - CONVULSION [None]
